FAERS Safety Report 24300796 (Version 2)
Quarter: 2024Q4

REPORT INFORMATION
  Report Type: Report from Study
  Country: PL (occurrence: PL)
  Receive Date: 20240910
  Receipt Date: 20241009
  Transmission Date: 20250114
  Serious: Yes (Hospitalization)
  Sender: ROCHE
  Company Number: PL-ROCHE-10000072123

PATIENT
  Age: 48 Year
  Sex: Male
  Weight: 113.0 kg

DRUGS (20)
  1. OCRELIZUMAB [Suspect]
     Active Substance: OCRELIZUMAB
     Indication: Relapsing-remitting multiple sclerosis
     Dosage: DOSE LAST STUDY DRUG ADMIN PRIOR AE IS 600 MG?DOSE LAST STUDY DRUG ADMIN PRIOR SAE IS 600 MG
     Route: 042
     Dates: start: 20210212
  2. OCRELIZUMAB [Suspect]
     Active Substance: OCRELIZUMAB
     Route: 042
     Dates: start: 20230202, end: 20230202
  3. OCRELIZUMAB [Suspect]
     Active Substance: OCRELIZUMAB
     Route: 042
     Dates: start: 20210301, end: 20210301
  4. OCRELIZUMAB [Suspect]
     Active Substance: OCRELIZUMAB
     Route: 042
     Dates: start: 20230915, end: 20230915
  5. OCRELIZUMAB [Suspect]
     Active Substance: OCRELIZUMAB
     Route: 042
     Dates: start: 20220224, end: 20220224
  6. OCRELIZUMAB [Suspect]
     Active Substance: OCRELIZUMAB
     Route: 042
     Dates: start: 20220809, end: 20220809
  7. OCRELIZUMAB [Suspect]
     Active Substance: OCRELIZUMAB
     Route: 042
     Dates: start: 20240301, end: 20240301
  8. OCRELIZUMAB [Suspect]
     Active Substance: OCRELIZUMAB
     Route: 042
     Dates: start: 20210825, end: 20210825
  9. TELMISARTAN [Concomitant]
     Active Substance: TELMISARTAN
     Route: 048
  10. INDAPAMIDE [Concomitant]
     Active Substance: INDAPAMIDE
     Dosage: DRUG DOSE FIRST ADMINISTERED IS 1 TABLET
     Route: 048
  11. NEUROVIT [Concomitant]
     Dosage: DRUG DOSE FIRST ADMINISTERED IS 1 TABLET
     Route: 048
  12. LECALPIN [Concomitant]
     Route: 048
  13. ALLOPURINOL [Concomitant]
     Active Substance: ALLOPURINOL
     Indication: Prophylaxis
     Route: 048
  14. CARDURA XL [Concomitant]
     Active Substance: DOXAZOSIN MESYLATE
     Route: 048
  15. METOPROLOL TARTRATE [Concomitant]
     Active Substance: METOPROLOL TARTRATE
     Route: 048
  16. TORSEMIDE [Concomitant]
     Active Substance: TORSEMIDE
     Indication: Prophylaxis
     Route: 048
  17. SPIRONOLACTONE [Concomitant]
     Active Substance: SPIRONOLACTONE
     Route: 048
  18. YLPIO [Concomitant]
     Dates: start: 202407
  19. GLUCOPHAGE XR [Concomitant]
     Active Substance: METFORMIN HYDROCHLORIDE
     Dates: start: 202407
  20. BETAMETHASONE DIPROPIONATE\GENTAMICIN SULFATE [Concomitant]
     Active Substance: BETAMETHASONE DIPROPIONATE\GENTAMICIN SULFATE
     Route: 061
     Dates: start: 20240830, end: 20240909

REACTIONS (1)
  - Erysipelas [Recovering/Resolving]

NARRATIVE: CASE EVENT DATE: 20240829
